FAERS Safety Report 14245054 (Version 1)
Quarter: 2017Q4

REPORT INFORMATION
  Report Type: Spontaneous
  Country: CA (occurrence: CA)
  Receive Date: 20171202
  Receipt Date: 20171202
  Transmission Date: 20180321
  Serious: Yes (Hospitalization, Other)
  Sender: FDA-Public Use
  Company Number: CA-ROCHE-2028739

PATIENT
  Age: 47 Year
  Sex: Female

DRUGS (4)
  1. PREDNISONE. [Suspect]
     Active Substance: PREDNISONE
     Indication: RENAL TRANSPLANT
     Route: 065
  2. THYMOGLOBULIN [Concomitant]
     Active Substance: LAPINE T-LYMPHOCYTE IMMUNE GLOBULIN
     Indication: RENAL TRANSPLANT
     Route: 065
  3. MYCOPHENOLATE MOFETIL. [Suspect]
     Active Substance: MYCOPHENOLATE MOFETIL
     Indication: RENAL TRANSPLANT
     Route: 065
  4. TACROLIMUS. [Suspect]
     Active Substance: TACROLIMUS
     Indication: RENAL TRANSPLANT
     Route: 065

REACTIONS (8)
  - Haematuria [Recovered/Resolved]
  - Diarrhoea [Recovered/Resolved]
  - Diffuse large B-cell lymphoma [Recovered/Resolved]
  - Abnormal loss of weight [Recovered/Resolved]
  - Epstein-Barr virus infection [Recovered/Resolved]
  - Hydronephrosis [Recovered/Resolved]
  - Kidney enlargement [Recovered/Resolved]
  - Transplant dysfunction [Recovered/Resolved]
